FAERS Safety Report 5336733-2 (Version None)
Quarter: 2007Q2

REPORT INFORMATION
  Report Type: 
  Country: None (occurrence: None)
  Receive Date: 20070529
  Receipt Date: 20070518
  Transmission Date: 20071010
  Serious: Yes (Other)
  Sender: FDA-Public Use
  Company Number: PHFR2007MT01654

PATIENT
  Age: 60 Year
  Sex: Female

DRUGS (1)
  1. LESCOL XL [Suspect]
     Indication: BLOOD CHOLESTEROL INCREASED
     Dosage: 80MG/DAY
     Route: 048
     Dates: start: 20060428, end: 20060501

REACTIONS (1)
  - CHEST PAIN [None]
